FAERS Safety Report 11682595 (Version 1)
Quarter: 2015Q4

REPORT INFORMATION
  Report Type: Report from Study
  Country: US (occurrence: US)
  Receive Date: 20151029
  Receipt Date: 20151029
  Transmission Date: 20160304
  Serious: No
  Sender: FDA-Public Use
  Company Number: PHEH2015US021971

PATIENT
  Sex: Male
  Weight: 60 kg

DRUGS (1)
  1. ZYKADIA [Suspect]
     Active Substance: CERITINIB
     Indication: BRONCHIAL NEOPLASM
     Dosage: 600 MG, QD
     Route: 048
     Dates: start: 20151021

REACTIONS (1)
  - Headache [Unknown]
